FAERS Safety Report 12615891 (Version 3)
Quarter: 2016Q3

REPORT INFORMATION
  Report Type: Spontaneous
  Country: DE (occurrence: DE)
  Receive Date: 20160802
  Receipt Date: 20160912
  Transmission Date: 20161109
  Serious: Yes (Other)
  Sender: FDA-Public Use
  Company Number: DE-PFIZER INC-2016361811

PATIENT
  Age: 68 Year
  Sex: Female

DRUGS (6)
  1. L-THYROXIN [Concomitant]
     Active Substance: LEVOTHYROXINE SODIUM
     Indication: THYROID DISORDER
  2. PREDNISOLONE. [Concomitant]
     Active Substance: PREDNISOLONE
     Indication: RHEUMATIC DISORDER
     Dosage: 5 MG, UNK
  3. METHOTREXATE (METHOTREXATE SODIUM) [Suspect]
     Active Substance: METHOTREXATE SODIUM
     Dosage: 15 MG, WEEKLY, SOLUTION IN PRE-FILLED SYRINGE, INJECTION
     Route: 058
     Dates: start: 20160701
  4. IBUPROFEN. [Concomitant]
     Active Substance: IBUPROFEN
     Indication: RHEUMATIC DISORDER
  5. CANDESARTAN [Concomitant]
     Active Substance: CANDESARTAN
     Indication: HYPERTENSION
  6. METHOTREXATE (METHOTREXATE SODIUM) [Suspect]
     Active Substance: METHOTREXATE SODIUM
     Indication: RHEUMATIC DISORDER
     Dosage: 15 MG, 2X/ WEEKLY, SOLUTION IN PRE-FILLED SYRINGE, INJECTION
     Route: 058
     Dates: start: 20160624, end: 20160701

REACTIONS (6)
  - Oedema [Recovered/Resolved]
  - Bursitis [Unknown]
  - Arthralgia [Recovered/Resolved]
  - Alopecia [Recovered/Resolved]
  - Mucosal exfoliation [Recovered/Resolved]
  - Chest pain [Recovered/Resolved]

NARRATIVE: CASE EVENT DATE: 20160626
